FAERS Safety Report 8620808-6 (Version None)
Quarter: 2012Q3

REPORT INFORMATION
  Report Type: 
  Country: None (occurrence: None)
  Receive Date: 20120824
  Receipt Date: 20120809
  Transmission Date: 20120928
  Serious: Yes (Other)
  Sender: FDA-Public Use
  Company Number: US-ROCHE-1100176

PATIENT
  Sex: Male
  Weight: 74.91 kg

DRUGS (4)
  1. XELODA [Suspect]
     Dosage: THERAPY START DATE:/JUL/2012
     Route: 048
  2. OXALIPLATIN [Concomitant]
     Indication: PANCREATIC CARCINOMA
     Dosage: THERAPY START DATE :/JUL/2012
     Route: 041
  3. XELODA [Suspect]
     Indication: PANCREATIC CARCINOMA
     Dosage: THERAPY END DATE:/JUN/2012
     Route: 048
     Dates: start: 20120620
  4. CIPROFLOXACIN HCL [Concomitant]
     Indication: BLOOD CULTURE POSITIVE
     Dosage: THERAPY END DATE:/JUL/2012
     Route: 048
     Dates: start: 20120701

REACTIONS (2)
  - LIVER DISORDER [None]
  - PYREXIA [None]
